FAERS Safety Report 11977558 (Version 2)
Quarter: 2016Q1

REPORT INFORMATION
  Report Type: Report from Study
  Country: DE (occurrence: DE)
  Receive Date: 20160129
  Receipt Date: 20160212
  Transmission Date: 20160526
  Serious: Yes (Death)
  Sender: FDA-Public Use
  Company Number: DE-ACTELION-A-NJ2016-130640

PATIENT
  Age: 78 Year
  Sex: Male

DRUGS (12)
  1. MAGNESIUM [Concomitant]
     Active Substance: MAGNESIUM
  2. DIGOXIN. [Concomitant]
     Active Substance: DIGOXIN
  3. VENTAVIS [Suspect]
     Active Substance: ILOPROST
     Indication: PULMONARY ARTERIAL HYPERTENSION
     Dosage: 5 MCG, 6X A DAY
     Route: 055
     Dates: start: 20101008
  4. PANTOPRAZOLE [Concomitant]
     Active Substance: PANTOPRAZOLE SODIUM
  5. COLECALCIFEROL [Concomitant]
     Active Substance: CHOLECALCIFEROL
  6. PREDNISOLONE. [Concomitant]
     Active Substance: PREDNISOLONE
  7. ALLOPURINOL. [Concomitant]
     Active Substance: ALLOPURINOL
  8. TORSEMIDE. [Concomitant]
     Active Substance: TORSEMIDE
  9. PHENPROCOUMON [Concomitant]
     Active Substance: PHENPROCOUMON
  10. TADALAFIL [Concomitant]
     Active Substance: TADALAFIL
  11. CALCIUM CARBONATE. [Concomitant]
     Active Substance: CALCIUM CARBONATE
  12. MOVICOL [Concomitant]
     Active Substance: POLYETHYLENE GLYCOL 3350\POTASSIUM CHLORIDE\SODIUM BICARBONATE\SODIUM CHLORIDE

REACTIONS (2)
  - Right ventricular failure [Fatal]
  - Pulmonary arterial hypertension [Fatal]

NARRATIVE: CASE EVENT DATE: 20160107
